FAERS Safety Report 6738095-2 (Version None)
Quarter: 2010Q2

REPORT INFORMATION
  Report Type: 
  Country: None (occurrence: None)
  Receive Date: 20100520
  Receipt Date: 20100504
  Transmission Date: 20101027
  Serious: Yes (Hospitalization, Other)
  Sender: FDA-Public Use
  Company Number: 20100199

PATIENT
  Age: 82 Year
  Sex: Female

DRUGS (5)
  1. ATROPINE SULFATE [Suspect]
     Indication: BRADYCARDIA
     Dosage: 0.5 MG INTRAVENOUS
     Route: 042
  2. NITROGLYCERIN [Concomitant]
  3. MORPHINE [Concomitant]
  4. CLOIDOGREL [Concomitant]
  5. ASPIRIN [Concomitant]

REACTIONS (2)
  - CONDITION AGGRAVATED [None]
  - STRESS CARDIOMYOPATHY [None]
